FAERS Safety Report 8932486 (Version 1)
Quarter: 2012Q4

REPORT INFORMATION
  Report Type: Spontaneous
  Country: US (occurrence: None)
  Receive Date: 20121126
  Receipt Date: 20121126
  Transmission Date: 20130627
  Serious: Yes (Other)
  Sender: FDA-Public Use
  Company Number: None

PATIENT
  Age: 64 Year
  Sex: Male
  Weight: 82.1 kg

DRUGS (7)
  1. TRIMETHOPRIM-SULFAMETHOXAZOLE [Suspect]
     Indication: PNEUMONIA
     Route: 042
     Dates: start: 20121014, end: 20121017
  2. LINEZOLID [Suspect]
     Indication: PNEUMONIA
     Route: 042
     Dates: start: 20121014, end: 20121017
  3. BRIMONIDINE [Concomitant]
  4. SIROLIMUS [Concomitant]
  5. CHOLORHEXIDINE [Concomitant]
  6. TIMOLOL [Concomitant]
  7. LORATIDINE [Concomitant]

REACTIONS (3)
  - Pancytopenia [None]
  - Blood creatinine increased [None]
  - Diastolic dysfunction [None]
